FAERS Safety Report 5827593-1 (Version None)
Quarter: 2008Q3

REPORT INFORMATION
  Report Type: 
  Country: None (occurrence: None)
  Receive Date: 20080730
  Receipt Date: 20080707
  Transmission Date: 20090109
  Serious: No
  Sender: FDA-Public Use
  Company Number: US-BOEHRINGER INGELHEIM GMBH, GERMANY-2008-BP-10699BP

PATIENT
  Age: 13 Year
  Sex: Female

DRUGS (4)
  1. ZANTAC 75 [Suspect]
     Indication: GASTRITIS
     Route: 048
     Dates: start: 20080701
  2. ZYRTEC [Concomitant]
     Indication: HYPERSENSITIVITY
     Route: 048
  3. NASONEX [Concomitant]
     Indication: ASTHMA EXERCISE INDUCED
     Route: 045
  4. MAXAIR [Concomitant]
     Indication: ASTHMA EXERCISE INDUCED

REACTIONS (1)
  - DIARRHOEA [None]
